FAERS Safety Report 25923932 (Version 1)
Quarter: 2025Q4

REPORT INFORMATION
  Report Type: Spontaneous
  Country: US (occurrence: US)
  Receive Date: 20251015
  Receipt Date: 20251015
  Transmission Date: 20260118
  Serious: Yes (Other)
  Sender: LP PHARMACEUTICALS INC
  Company Number: US-LP Pharmaceuticals Inc -2186611

PATIENT
  Age: 6 Decade
  Sex: Female

DRUGS (3)
  1. ARIPIPRAZOLE [Suspect]
     Active Substance: ARIPIPRAZOLE
     Indication: Parkinsonism
  2. PAROXETINE [Suspect]
     Active Substance: PAROXETINE
  3. BENZTROPINE [Suspect]
     Active Substance: BENZTROPINE

REACTIONS (1)
  - Serotonin syndrome [Unknown]
